FAERS Safety Report 14008726 (Version 2)
Quarter: 2018Q4

REPORT INFORMATION
  Report Type: Spontaneous
  Country: CZ (occurrence: CZ)
  Receive Date: 20170925
  Receipt Date: 20181009
  Transmission Date: 20190204
  Serious: Yes (Death)
  Sender: FDA-Public Use
  Company Number: CZ-ROCHE-1998389

PATIENT
  Age: 65 Year
  Sex: Female

DRUGS (4)
  1. CORDARONE [Concomitant]
     Active Substance: AMIODARONE HYDROCHLORIDE
     Indication: PRODUCT USED FOR UNKNOWN INDICATION
     Dosage: 2-0-2 TABLET (2 DOSAGE FORMS 2-0-2)
     Route: 065
  2. ACTILYSE [Suspect]
     Active Substance: ALTEPLASE
     Indication: PRODUCT USED FOR UNKNOWN INDICATION
     Route: 048
     Dates: start: 20170910
  3. LETROX [Concomitant]
     Active Substance: LEVOTHYROXINE SODIUM
     Indication: PRODUCT USED FOR UNKNOWN INDICATION
     Dosage: FREQUENCY: 1-0-1 TU AND TH 1-0-1 (1-0-1 TU AND TH 1-0-1).
     Route: 065
  4. THROMBOREDUCTIN [Concomitant]
     Indication: PRODUCT USED FOR UNKNOWN INDICATION
     Dosage: 2-0-2 TABLET. (2 DOSAGE FORMS,2-0-2)
     Route: 065

REACTIONS (1)
  - Cerebral haematoma [Fatal]

NARRATIVE: CASE EVENT DATE: 20170911
